FAERS Safety Report 18012096 (Version 1)
Quarter: 2020Q3

REPORT INFORMATION
  Report Type: Spontaneous
  Country: CN (occurrence: CN)
  Receive Date: 20200713
  Receipt Date: 20200713
  Transmission Date: 20201103
  Serious: Yes (Other)
  Sender: FDA-Public Use
  Company Number: CN-SA-2020SA173566

PATIENT

DRUGS (4)
  1. LEFLUNOMIDE. [Suspect]
     Active Substance: LEFLUNOMIDE
     Indication: SYSTEMIC LUPUS ERYTHEMATOSUS
     Dosage: 20 MG, QD
  2. PREDNISONE. [Concomitant]
     Active Substance: PREDNISONE
     Indication: SYSTEMIC LUPUS ERYTHEMATOSUS
     Dosage: 30 MG, QD
  3. PREDNISONE. [Concomitant]
     Active Substance: PREDNISONE
     Dosage: 50 MG, QD
     Route: 048
  4. PREDNISONE. [Concomitant]
     Active Substance: PREDNISONE
     Dosage: 30 MG, QD

REACTIONS (8)
  - Rash erythematous [Recovered/Resolved with Sequelae]
  - Pruritus [Recovered/Resolved with Sequelae]
  - Post inflammatory pigmentation change [Not Recovered/Not Resolved]
  - Macule [Recovered/Resolved with Sequelae]
  - Skin lesion [Recovered/Resolved with Sequelae]
  - Erythema multiforme [Recovered/Resolved with Sequelae]
  - Epidermal necrosis [Recovered/Resolved with Sequelae]
  - Lymphocytic infiltration [Recovered/Resolved with Sequelae]
